FAERS Safety Report 21774773 (Version 1)
Quarter: 2022Q4

REPORT INFORMATION
  Report Type: Spontaneous
  Country: US (occurrence: US)
  Receive Date: 20221224
  Receipt Date: 20221224
  Transmission Date: 20230112
  Serious: Yes (Hospitalization)
  Sender: FDA-Public Use
  Company Number: US-drreddys-LIT/USA/22/0158764

PATIENT
  Age: 57 Year
  Sex: Male

DRUGS (5)
  1. ALBENDAZOLE [Suspect]
     Active Substance: ALBENDAZOLE
     Indication: Neurocysticercosis
  2. ALBENDAZOLE [Suspect]
     Active Substance: ALBENDAZOLE
     Dosage: DOSE REDUCED
  3. PRAZIQUANTEL [Suspect]
     Active Substance: PRAZIQUANTEL
     Indication: Neurocysticercosis
  4. COTRIMOXAZOLE [Suspect]
     Active Substance: SULFAMETHOXAZOLE\TRIMETHOPRIM
     Indication: Neurocysticercosis
  5. LEVETIRACETAM [Concomitant]
     Active Substance: LEVETIRACETAM
     Indication: Seizure prophylaxis

REACTIONS (2)
  - Hypertransaminasaemia [Recovered/Resolved]
  - Mycobacterium tuberculosis complex test positive [Unknown]
